FAERS Safety Report 4625314-1 (Version None)
Quarter: 2005Q2

REPORT INFORMATION
  Report Type: 
  Country: None (occurrence: None)
  Receive Date: 20050325
  Receipt Date: 20050127
  Transmission Date: 20051028
  Serious: No
  Sender: FDA-Public Use
  Company Number: USA050189315

PATIENT
  Age: 79 Year
  Sex: Female

DRUGS (4)
  1. FORTEO [Suspect]
     Dates: start: 20050121
  2. CYMBALTA [Suspect]
     Indication: NEUROPATHIC PAIN
     Dosage: 30 MG DAY
     Dates: start: 20050119
  3. GLUCOPHAGE [Concomitant]
  4. GLUCOTROL XL [Concomitant]

REACTIONS (1)
  - BLOOD GLUCOSE INCREASED [None]
